FAERS Safety Report 25932019 (Version 1)
Quarter: 2025Q4

REPORT INFORMATION
  Report Type: Spontaneous
  Country: GB (occurrence: GB)
  Receive Date: 20251016
  Receipt Date: 20251016
  Transmission Date: 20260118
  Serious: Yes (Other)
  Sender: ELI LILLY AND COMPANY
  Company Number: None

PATIENT
  Age: 32 Year
  Sex: Female
  Weight: 86 kg

DRUGS (3)
  1. IXEKIZUMAB [Suspect]
     Active Substance: IXEKIZUMAB
     Indication: Psoriasis
     Dosage: 160 MG, SINGLE (LOADING DOSE)
     Route: 058
     Dates: start: 20250930, end: 20251013
  2. SERTRALINE [Concomitant]
     Active Substance: SERTRALINE HYDROCHLORIDE
     Indication: Depression
     Dates: start: 20231002
  3. DEPO-PROVERA [Concomitant]
     Active Substance: MEDROXYPROGESTERONE ACETATE
     Indication: Contraception
     Dates: start: 20200217

REACTIONS (8)
  - Q fever [Recovered/Resolved]
  - Muscle fatigue [Recovered/Resolved]
  - Injection site rash [Not Recovered/Not Resolved]
  - Injection site oedema [Unknown]
  - Injection site pain [Recovering/Resolving]
  - Injection site urticaria [Recovered/Resolved]
  - Injection site mass [Recovering/Resolving]
  - Nausea [Recovering/Resolving]

NARRATIVE: CASE EVENT DATE: 20251010
